FAERS Safety Report 15981955 (Version 2)
Quarter: 2019Q3

REPORT INFORMATION
  Report Type: Report from Study
  Country: GB (occurrence: GB)
  Receive Date: 20190219
  Receipt Date: 20190910
  Transmission Date: 20191004
  Serious: Yes (Other)
  Sender: FDA-Public Use
  Company Number: GB-JNJFOC-20190214500

PATIENT
  Age: 55 Year
  Sex: Female
  Weight: 89.9 kg

DRUGS (8)
  1. LOSARTAN. [Concomitant]
     Active Substance: LOSARTAN
     Route: 065
     Dates: start: 20181218
  2. FOSTAIR [Concomitant]
     Active Substance: BECLOMETHASONE\FORMOTEROL
     Route: 065
     Dates: start: 20150906
  3. RAMIPRIL. [Concomitant]
     Active Substance: RAMIPRIL
     Route: 065
     Dates: start: 20180123, end: 20181218
  4. GLICLAZIDE [Concomitant]
     Active Substance: GLICLAZIDE
     Route: 065
     Dates: start: 20180628
  5. STELARA [Suspect]
     Active Substance: USTEKINUMAB
     Indication: PSORIASIS
     Route: 058
     Dates: start: 20170727
  6. METFORMIN [Concomitant]
     Active Substance: METFORMIN HYDROCHLORIDE
     Route: 065
     Dates: start: 20160812
  7. SALBUTAMOL [Concomitant]
     Active Substance: ALBUTEROL
     Route: 065
     Dates: start: 20140513
  8. ALOGLIPTIN. [Concomitant]
     Active Substance: ALOGLIPTIN
     Route: 065
     Dates: start: 20180313

REACTIONS (2)
  - Bowen^s disease [Unknown]
  - Basal cell carcinoma [Not Recovered/Not Resolved]

NARRATIVE: CASE EVENT DATE: 20190207
